FAERS Safety Report 7506707-1 (Version None)
Quarter: 2011Q2

REPORT INFORMATION
  Report Type: 
  Country: None (occurrence: None)
  Receive Date: 20110414
  Receipt Date: 20101013
  Transmission Date: 20111010
  Serious: Yes (Other)
  Sender: FDA-Public Use
  Company Number: CIP10002472

PATIENT
  Age: 72 Year
  Sex: Female

DRUGS (1)
  1. MACRODANTIN [Suspect]
     Dosage: ONE PILL ONLY

REACTIONS (3)
  - DRUG HYPERSENSITIVITY [None]
  - BODY TEMPERATURE INCREASED [None]
  - PULMONARY MASS [None]
